FAERS Safety Report 21198539 (Version 2)
Quarter: 2022Q3

REPORT INFORMATION
  Report Type: Spontaneous
  Country: FR (occurrence: FR)
  Receive Date: 20220811
  Receipt Date: 20220816
  Transmission Date: 20221027
  Serious: Yes (Life-Threatening, Hospitalization, Other)
  Sender: FDA-Public Use
  Company Number: FR-AFSSAPS-MP20222722

PATIENT
  Age: 76 Year
  Sex: Female
  Weight: 76.5 kg

DRUGS (3)
  1. ORENCIA [Suspect]
     Active Substance: ABATACEPT
     Indication: Rheumatoid arthritis
     Dosage: 750 MG / 4 SEMAINES
     Route: 042
     Dates: start: 20220217, end: 202205
  2. ORENCIA [Suspect]
     Active Substance: ABATACEPT
  3. PREDNISOLONE [Suspect]
     Active Substance: PREDNISOLONE
     Indication: Rheumatoid arthritis
     Dosage: 10MG FOR 15 DAYS THEN DECREASE BY 2.5MG EACH WEEK UNTIL THE BASE DOSE : 5 MG
     Route: 048

REACTIONS (1)
  - Pneumocystis jirovecii pneumonia [Recovered/Resolved with Sequelae]

NARRATIVE: CASE EVENT DATE: 20220608
